FAERS Safety Report 5819895-X (Version None)
Quarter: 2008Q3

REPORT INFORMATION
  Report Type: 
  Country: None (occurrence: None)
  Receive Date: 20080717
  Receipt Date: 20080703
  Transmission Date: 20090109
  Serious: Yes (Other)
  Sender: FDA-Public Use
  Company Number: 08-001125

PATIENT
  Sex: Female

DRUGS (4)
  1. ERYC NDA 50-536(ERYTHROMYCIN) CAPSULE, 250MG [Suspect]
     Indication: PREMATURE RUPTURE OF MEMBRANES
     Dosage: 250 MG Q6H, PARENTERAL
     Route: 051
  2. ERYC NDA 50-536(ERYTHROMYCIN) CAPSULE, 250MG [Suspect]
     Dosage: 250 MG Q6H, ORAL
     Route: 048
  3. CEPHALEXIN [Suspect]
     Indication: PREMATURE RUPTURE OF MEMBRANES
     Dosage: 500 MG Q6H, ORAL
     Route: 048
  4. CEFAZOLIN [Suspect]
     Indication: PREMATURE RUPTURE OF MEMBRANES
     Dosage: 2 GRAMS Q8H, PARENTERAL
     Route: 051

REACTIONS (6)
  - BRONCHOPULMONARY DYSPLASIA [None]
  - INTRAVENTRICULAR HAEMORRHAGE NEONATAL [None]
  - NECROTISING ENTEROCOLITIS NEONATAL [None]
  - NEONATAL PNEUMONIA [None]
  - NEONATAL RESPIRATORY DISTRESS SYNDROME [None]
  - SEPSIS NEONATAL [None]
